FAERS Safety Report 15793147 (Version 1)
Quarter: 2019Q1

REPORT INFORMATION
  Report Type: Spontaneous
  Country: US (occurrence: US)
  Receive Date: 20190103
  Receipt Date: 20190103
  Transmission Date: 20190417
  Serious: No
  Sender: FDA-Public Use
  Company Number: None

PATIENT

DRUGS (4)
  1. EHR (DEVICE) [Suspect]
     Active Substance: DEVICE
  2. OXYBUTYNIN EXTENDED RELEASE [Suspect]
     Active Substance: OXYBUTYNIN
  3. OXYCODONE HCL EXTENDED RELEASE [Suspect]
     Active Substance: OXYCODONE HYDROCHLORIDE
  4. SOLIFENACIN SUCCINATE. [Suspect]
     Active Substance: SOLIFENACIN SUCCINATE

REACTIONS (1)
  - Intercepted product selection error [None]
